FAERS Safety Report 13328950 (Version 1)
Quarter: 2017Q1

REPORT INFORMATION
  Report Type: Spontaneous
  Country: US (occurrence: US)
  Receive Date: 20170310
  Receipt Date: 20170310
  Transmission Date: 20170428
  Serious: Yes (Hospitalization)
  Sender: FDA-Public Use
  Company Number: None

PATIENT
  Age: 51 Year
  Sex: Female

DRUGS (1)
  1. COPAXONE [Suspect]
     Active Substance: GLATIRAMER ACETATE
     Indication: MULTIPLE SCLEROSIS
     Route: 058
     Dates: start: 20170113, end: 20170215

REACTIONS (5)
  - Cyanosis [None]
  - Anaphylactic reaction [None]
  - Dyspnoea [None]
  - Therapy cessation [None]
  - Throat tightness [None]

NARRATIVE: CASE EVENT DATE: 20170215
